FAERS Safety Report 9596554 (Version 1)
Quarter: 2013Q4

REPORT INFORMATION
  Report Type: Report from Study
  Country: MX (occurrence: MX)
  Receive Date: 20131004
  Receipt Date: 20131004
  Transmission Date: 20140711
  Serious: Yes (Hospitalization, Other)
  Sender: FDA-Public Use
  Company Number: PHHY2013MX111090

PATIENT
  Age: 70 Year
  Sex: Female

DRUGS (3)
  1. EXFORGE [Suspect]
     Indication: HYPERTENSION
     Dosage: 2 DF (160/5MG), DAILY
     Route: 048
     Dates: start: 200903, end: 200908
  2. ENALAPRIL [Concomitant]
     Indication: BLOOD PRESSURE ABNORMAL
     Dosage: 4 UKN, DAILY
  3. GABAPENTINE [Concomitant]
     Indication: PAIN
     Dosage: 2 UKN, DAILY
     Dates: start: 200510

REACTIONS (6)
  - Viral infection [Unknown]
  - Cor pulmonale [Not Recovered/Not Resolved]
  - Sleep apnoea syndrome [Not Recovered/Not Resolved]
  - Apnoea [Not Recovered/Not Resolved]
  - Abdominal hernia [Not Recovered/Not Resolved]
  - Abdominal pain lower [Not Recovered/Not Resolved]
